FAERS Safety Report 7162680-X (Version None)
Quarter: 2010Q4

REPORT INFORMATION
  Report Type: 
  Country: None (occurrence: None)
  Receive Date: 20101201
  Receipt Date: 20101123
  Transmission Date: 20110411
  Serious: Yes (Other)
  Sender: FDA-Public Use
  Company Number: 20108845

PATIENT
  Sex: Female

DRUGS (1)
  1. LIORESAL [Suspect]
     Indication: MUSCLE SPASTICITY
     Dosage: 200 - 300 MCG, DAILY, INTRATHECAL
     Route: 037

REACTIONS (7)
  - ABDOMINAL DISCOMFORT [None]
  - HAEMORRHAGE [None]
  - HEADACHE [None]
  - HYPOTONIA [None]
  - MUSCLE TIGHTNESS [None]
  - THERAPEUTIC RESPONSE DECREASED [None]
  - TINNITUS [None]
